FAERS Safety Report 17552460 (Version 2)
Quarter: 2020Q1

REPORT INFORMATION
  Report Type: Spontaneous
  Country: FR (occurrence: FR)
  Receive Date: 20200318
  Receipt Date: 20200330
  Transmission Date: 20200409
  Serious: Yes (Hospitalization, Other)
  Sender: FDA-Public Use
  Company Number: FR-AUROBINDO-AUR-APL-2014-08577

PATIENT
  Sex: Female

DRUGS (1)
  1. PARACETAMOL [Suspect]
     Active Substance: ACETAMINOPHEN
     Indication: PRODUCT USED FOR UNKNOWN INDICATION
     Dosage: UNK
     Route: 065

REACTIONS (20)
  - Alanine aminotransferase increased [Recovered/Resolved]
  - Coagulation factor V level decreased [Recovered/Resolved]
  - Multi-organ disorder [Recovered/Resolved]
  - Blood glucose increased [Recovered/Resolved]
  - Hepatic function abnormal [Recovered/Resolved]
  - Intestinal infarction [Recovered/Resolved]
  - Ammonia increased [Recovered/Resolved]
  - Blood creatinine increased [Recovered/Resolved]
  - Blood bilirubin increased [Recovered/Resolved]
  - Fibrin D dimer decreased [Recovered/Resolved]
  - Blood lactic acid increased [Recovered/Resolved]
  - Aspartate aminotransferase increased [Recovered/Resolved]
  - Blood creatine phosphokinase increased [Recovered/Resolved]
  - Platelet count decreased [Recovered/Resolved]
  - Intentional overdose [Recovered/Resolved]
  - Toxicity to various agents [Recovered/Resolved]
  - Poisoning deliberate [Recovered/Resolved]
  - Coma [Recovered/Resolved]
  - Acute hepatic failure [Recovered/Resolved]
  - Blood pH decreased [Recovered/Resolved]
